FAERS Safety Report 7518356-X (Version None)
Quarter: 2011Q2

REPORT INFORMATION
  Report Type: 
  Country: None (occurrence: None)
  Receive Date: 20110602
  Receipt Date: 20081122
  Transmission Date: 20111010
  Serious: No
  Sender: FDA-Public Use
  Company Number: US-BAYER-200839514NA

PATIENT
  Age: 69 Year
  Sex: Male
  Weight: 116.1 kg

DRUGS (24)
  1. HEPARIN [Concomitant]
     Dosage: 10 UNK, UNK
     Dates: start: 20050120
  2. OMNIPAQUE 140 [Concomitant]
     Dosage: 95 ML, UNK
     Dates: start: 20041222
  3. CELEBREX [Concomitant]
     Dosage: 1-2 UNK, QD
     Route: 048
  4. ACETYLSALICYLIC ACID SRT [Concomitant]
     Dosage: 325 MG, QD
     Route: 048
  5. MAGNESIUM SULFATE [Concomitant]
     Dosage: 2 G, UNK
     Dates: start: 20050120
  6. BICARBONAT [Concomitant]
     Dosage: 50 UNK, UNK
     Dates: start: 20050120
  7. ALBUMIN (HUMAN) [Concomitant]
     Dosage: UNK
     Dates: start: 20050120
  8. LEVAQUIN [Concomitant]
     Dosage: 500 MG, UNK
     Route: 042
     Dates: start: 20050120
  9. LASIX [Concomitant]
     Dosage: UNK
     Dates: start: 20050120
  10. LOTENSIN [Concomitant]
     Dosage: 10-20 UNK, UNK
     Route: 048
  11. MANNITOL [Concomitant]
     Dosage: 50 UNK, UNK
     Dates: start: 20050120
  12. DOBUTAMINE HYDROCHLORIDE [Concomitant]
     Dosage: UNK
     Dates: start: 20050120
  13. TOPROL-XL [Concomitant]
     Dosage: 50 MG, QD
  14. VYTORIN [Concomitant]
     Dosage: 10-20 MG, UNK
  15. PLAVIX [Concomitant]
     Dosage: 75 MG, QD
     Route: 048
  16. NORVASC [Concomitant]
     Dosage: 10 MG, QD
  17. NITROGLYCERIN [Concomitant]
     Dosage: UNK
     Dates: start: 20050120
  18. KEFZOL [Concomitant]
     Dosage: 2 G, UNK
     Dates: start: 20050120
  19. TRASYLOL [Suspect]
     Indication: CORONARY ARTERY BYPASS
     Dosage: UNK
     Route: 042
     Dates: start: 20050120, end: 20050120
  20. NITROGLYCERIN [Concomitant]
     Indication: IMAGING PROCEDURE
     Dosage: 400 MCG, UNK
     Dates: start: 20041222
  21. HEPARIN [Concomitant]
     Indication: IMAGING PROCEDURE
     Dosage: 90000 U, UNK
     Dates: start: 20041222
  22. PROTAMINE SULFATE [Concomitant]
     Dosage: 500 MG, UNK
     Dates: start: 20050120
  23. SUCCINYLCHOLINE CHLORIDE [Concomitant]
     Dosage: UNK
     Dates: start: 20050120
  24. ESMOLOL [Concomitant]
     Dosage: UNK
     Dates: start: 20050120

REACTIONS (8)
  - EMOTIONAL DISTRESS [None]
  - ANXIETY [None]
  - FEAR [None]
  - UNEVALUABLE EVENT [None]
  - STRESS [None]
  - PAIN [None]
  - ANHEDONIA [None]
  - INJURY [None]
